FAERS Safety Report 9682030 (Version 1)
Quarter: 2013Q4

REPORT INFORMATION
  Report Type: Spontaneous
  Country: US (occurrence: US)
  Receive Date: 20131111
  Receipt Date: 20131111
  Transmission Date: 20140711
  Serious: Yes (Hospitalization)
  Sender: FDA-Public Use
  Company Number: US-MPIJNJ-2013MPI000869

PATIENT
  Age: 56 Year
  Sex: Male
  Weight: 92 kg

DRUGS (2)
  1. VELCADE [Suspect]
     Indication: PLASMA CELL MYELOMA
     Dosage: 2.85 MG, ON DAYS 1, 4, 8 AND 11
     Route: 058
     Dates: start: 20130927
  2. CYTOXAN [Suspect]
     Indication: PLASMA CELL MYELOMA
     Dosage: 450 MG, UNK
     Route: 042
     Dates: start: 20130927

REACTIONS (4)
  - Fall [Unknown]
  - Orthostatic hypotension [Not Recovered/Not Resolved]
  - Constipation [Recovered/Resolved]
  - Dehydration [Unknown]
